FAERS Safety Report 8508111-6 (Version None)
Quarter: 2012Q3

REPORT INFORMATION
  Report Type: 
  Country: None (occurrence: None)
  Receive Date: 20120713
  Receipt Date: 20120628
  Transmission Date: 20120928
  Serious: Yes (Hospitalization)
  Sender: FDA-Public Use
  Company Number: US-SHIRE-ALL1-2012-03158

PATIENT
  Sex: Female
  Weight: 68.027 kg

DRUGS (2)
  1. PENTASA [Suspect]
     Indication: CROHN'S DISEASE
     Dosage: 500 MG, 2X/DAY:BID
     Route: 048
     Dates: start: 20110701, end: 20120101
  2. PREDNISONE [Concomitant]
     Indication: CROHN'S DISEASE
     Dosage: UNK MG, 1X/DAY:QD
     Route: 048
     Dates: start: 20110601, end: 20110101

REACTIONS (4)
  - DRUG INEFFECTIVE FOR UNAPPROVED INDICATION [None]
  - MATERNAL EXPOSURE BEFORE PREGNANCY [None]
  - CROHN'S DISEASE [None]
  - OFF LABEL USE [None]
